FAERS Safety Report 5053883-9 (Version None)
Quarter: 2006Q3

REPORT INFORMATION
  Report Type: 
  Country: None (occurrence: None)
  Receive Date: 20060712
  Receipt Date: 20060622
  Transmission Date: 20061208
  Serious: Yes (Death, Hospitalization)
  Sender: FDA-Public Use
  Company Number: FR200601005294

PATIENT
  Age: 39 Year
  Sex: Female

DRUGS (3)
  1. PROZAC [Suspect]
     Indication: DEPRESSION
     Dosage: 20 MG, DAILY (1/D), ORAL; SEE IMAGE
     Route: 048
     Dates: end: 19970101
  2. PROZAC [Suspect]
     Indication: DEPRESSION
     Dosage: 20 MG, DAILY (1/D), ORAL; SEE IMAGE
     Route: 048
     Dates: end: 19970101
  3. PIPAMPERONE (PIPAMPERONE) [Concomitant]

REACTIONS (3)
  - COMPLETED SUICIDE [None]
  - DRUG DEPENDENCE [None]
  - MULTIPLE DRUG OVERDOSE INTENTIONAL [None]
